FAERS Safety Report 4621284-0 (Version None)
Quarter: 2005Q1

REPORT INFORMATION
  Report Type: 
  Country: None (occurrence: None)
  Receive Date: 20050329
  Receipt Date: 20050317
  Transmission Date: 20050727
  Serious: Yes (Other)
  Sender: FDA-Public Use
  Company Number: 200512165US

PATIENT
  Sex: Female

DRUGS (10)
  1. ARAVA [Suspect]
     Indication: RHEUMATOID ARTHRITIS
  2. FOLIC ACID [Concomitant]
  3. METHOTREXATE [Concomitant]
     Indication: RHEUMATOID ARTHRITIS
     Dosage: DOSE: 7.5 (8 TIMES WEEKLY)
  4. CALAN [Concomitant]
     Indication: HYPERTENSION
  5. FOSAMAX [Concomitant]
     Indication: OSTEOPOROSIS
  6. ASPIRIN [Concomitant]
  7. MULTIVITAMIN [Concomitant]
     Dosage: DOSE: UNK
  8. VITAMIN E [Concomitant]
     Dosage: DOSE: UNK
  9. CALCIUM GLUCONATE [Concomitant]
     Dosage: DOSE: UNK
  10. FISH OIL [Concomitant]
     Dosage: DOSE: UNK

REACTIONS (3)
  - BLINDNESS TRANSIENT [None]
  - BLINDNESS UNILATERAL [None]
  - MYOCARDIAL INFARCTION [None]
